FAERS Safety Report 23950121 (Version 2)
Quarter: 2025Q2

REPORT INFORMATION
  Report Type: Spontaneous
  Country: NL (occurrence: NL)
  Receive Date: 20240607
  Receipt Date: 20250619
  Transmission Date: 20250717
  Serious: Yes (Hospitalization, Other)
  Sender: AUROBINDO
  Company Number: NL-EMA-DD-20240527-7482711-095155

PATIENT
  Age: 86 Year
  Sex: Female

DRUGS (3)
  1. DESMOPRESSIN [Suspect]
     Active Substance: DESMOPRESSIN
     Indication: Nocturia
     Route: 048
  2. HYDROCHLOROTHIAZIDE [Suspect]
     Active Substance: HYDROCHLOROTHIAZIDE
     Indication: Hypertension
     Route: 065
  3. COUMARIN [Concomitant]
     Active Substance: COUMARIN
     Indication: Product used for unknown indication
     Route: 065

REACTIONS (8)
  - Depressed level of consciousness [Unknown]
  - Nervous system disorder [Recovering/Resolving]
  - Apraxia [Recovering/Resolving]
  - Communication disorder [Recovering/Resolving]
  - Confusional state [Recovering/Resolving]
  - Hyponatraemia [Recovering/Resolving]
  - Dysarthria [Recovered/Resolved]
  - Leukocyturia [Recovered/Resolved]
